FAERS Safety Report 21485244 (Version 1)
Quarter: 2022Q4

REPORT INFORMATION
  Report Type: Spontaneous
  Country: US (occurrence: None)
  Receive Date: 20221019
  Receipt Date: 20221019
  Transmission Date: 20230112
  Serious: No
  Sender: FDA-Public Use
  Company Number: None

PATIENT
  Age: 74 Year
  Sex: Female
  Weight: 55.8 kg

DRUGS (6)
  1. NURTEC ODT [Suspect]
     Active Substance: RIMEGEPANT SULFATE
     Indication: Product used for unknown indication
  2. LEVOTHYROXINE [Concomitant]
     Active Substance: LEVOTHYROXINE
  3. LIPITOR [Concomitant]
  4. MONTELUKAST [Concomitant]
     Active Substance: MONTELUKAST SODIUM
  5. MEMANTINE [Concomitant]
     Active Substance: MEMANTINE
  6. RIZATRIPTAN [Concomitant]
     Active Substance: RIZATRIPTAN

REACTIONS (1)
  - Rash [None]

NARRATIVE: CASE EVENT DATE: 20220510
